FAERS Safety Report 4531147-7 (Version None)
Quarter: 2004Q4

REPORT INFORMATION
  Report Type: 
  Country: None (occurrence: None)
  Receive Date: 20041130
  Receipt Date: 20040608
  Transmission Date: 20050328
  Serious: Yes (Disabling)
  Sender: FDA-Public Use
  Company Number: WAES 0406USA00857

PATIENT
  Age: 60 Year
  Sex: Female

DRUGS (10)
  1. FOSAMAX [Suspect]
     Indication: OSTEOPOROSIS PROPHYLAXIS
     Dosage: PO
     Route: 048
     Dates: start: 20040322, end: 20040405
  2. ACLOVATE [Concomitant]
  3. ACTONEL [Concomitant]
  4. CLARINEX [Concomitant]
  5. DERMATOP [Concomitant]
  6. ELOCON [Concomitant]
  7. PROTOPIC [Concomitant]
  8. ZOVIRAX [Concomitant]
  9. FLUOCINOLONE ACETONIDE [Concomitant]
  10. PREDNISONE [Concomitant]

REACTIONS (1)
  - VOMITING [None]
